FAERS Safety Report 7748355-4 (Version None)
Quarter: 2011Q3

REPORT INFORMATION
  Report Type: 
  Country: None (occurrence: None)
  Receive Date: 20110913
  Receipt Date: 20110912
  Transmission Date: 20111222
  Serious: Yes (Life-Threatening, Hospitalization, Other)
  Sender: FDA-Public Use
  Company Number: PHHY2011DE31110

PATIENT
  Sex: Male
  Weight: 75 kg

DRUGS (11)
  1. AFINITOR [Suspect]
     Indication: RENAL CELL CARCINOMA
     Dosage: 10 MG, DAILY
     Route: 048
     Dates: start: 20110113, end: 20110412
  2. RAMIPRIL [Concomitant]
     Dosage: 5 MG, BID
     Route: 048
  3. MARCUMAR [Concomitant]
     Dosage: ACCORDING INR
     Route: 048
  4. ACE INHIBITORS [Concomitant]
  5. HUMALOG [Concomitant]
     Indication: DIABETES MELLITUS
     Dosage: AS NEEDED
     Route: 058
  6. LEVEMIR [Concomitant]
     Indication: DIABETES MELLITUS
     Dosage: AS NEEDED
     Route: 058
  7. OMEPRAZOLE [Concomitant]
  8. DOCITON [Concomitant]
     Dosage: 10 MG, QD
     Route: 048
  9. ALLOBETA [Concomitant]
     Dosage: UNK UKN, QD
     Route: 048
  10. ABNOBAVISCUM [Concomitant]
  11. DICLOFENAC SODIUM [Concomitant]
     Dosage: 100 MG, BID
     Route: 048

REACTIONS (16)
  - PNEUMONITIS [None]
  - PNEUMONIA [None]
  - CHILLS [None]
  - ANAEMIA [None]
  - RENAL IMPAIRMENT [None]
  - DIABETES MELLITUS [None]
  - MALAISE [None]
  - FATIGUE [None]
  - CARDIOMEGALY [None]
  - GAMMA-GLUTAMYLTRANSFERASE INCREASED [None]
  - CARDIAC DISORDER [None]
  - DYSPNOEA [None]
  - PLEURAL EFFUSION [None]
  - PULMONARY EMBOLISM [None]
  - RIGHT VENTRICULAR FAILURE [None]
  - FIBRIN D DIMER INCREASED [None]
